FAERS Safety Report 7108232-9 (Version None)
Quarter: 2010Q4

REPORT INFORMATION
  Report Type: 
  Country: None (occurrence: None)
  Receive Date: 20101117
  Receipt Date: 20101110
  Transmission Date: 20110411
  Serious: Yes (Hospitalization)
  Sender: FDA-Public Use
  Company Number: PHHO2010CA11551

PATIENT
  Sex: Male
  Weight: 112.2 kg

DRUGS (5)
  1. TASIGNA [Suspect]
     Indication: CHRONIC MYELOID LEUKAEMIA
     Dosage: 300 MG, BID
     Dates: start: 20100713
  2. PANTOLOC [Concomitant]
     Indication: DYSPEPSIA
  3. LIPITOR [Concomitant]
  4. METOPROLOL [Concomitant]
     Indication: HYPERTENSION
     Dosage: UNK
  5. CALCIUM [Concomitant]
     Indication: MUSCLE SPASMS

REACTIONS (21)
  - ARTHRALGIA [None]
  - ATELECTASIS [None]
  - CHEST PAIN [None]
  - CONCOMITANT DISEASE PROGRESSION [None]
  - CONSTIPATION [None]
  - DIASTOLIC DYSFUNCTION [None]
  - DYSPNOEA [None]
  - EJECTION FRACTION ABNORMAL [None]
  - INTERVERTEBRAL DISC PROTRUSION [None]
  - ISCHAEMIA [None]
  - LEFT VENTRICULAR DYSFUNCTION [None]
  - LUNG DISORDER [None]
  - MITRAL VALVE INCOMPETENCE [None]
  - OSTEOARTHRITIS [None]
  - PAIN [None]
  - PLEURAL EFFUSION [None]
  - SCOLIOSIS [None]
  - STENT PLACEMENT [None]
  - TENDONITIS [None]
  - TYPE 2 DIABETES MELLITUS [None]
  - VENTRICULAR HYPOKINESIA [None]
